FAERS Safety Report 17152274 (Version 1)
Quarter: 2019Q4

REPORT INFORMATION
  Report Type: Spontaneous
  Country: US (occurrence: US)
  Receive Date: 20191213
  Receipt Date: 20191213
  Transmission Date: 20200122
  Serious: No
  Sender: FDA-Public Use
  Company Number: US-ASTRAZENECA-2019SF76204

PATIENT
  Sex: Female

DRUGS (1)
  1. SYNAGIS [Suspect]
     Active Substance: PALIVIZUMAB
     Dosage: 50MG/0.5ML, 15MG/KG, MONTHLY
     Route: 030
     Dates: start: 201910

REACTIONS (2)
  - Nasopharyngitis [Unknown]
  - Cough [Unknown]
